FAERS Safety Report 19764732 (Version 3)
Quarter: 2021Q3

REPORT INFORMATION
  Report Type: Report from Study
  Country: CA (occurrence: CA)
  Receive Date: 20210830
  Receipt Date: 20210928
  Transmission Date: 20211014
  Serious: Yes (Other)
  Sender: FDA-Public Use
  Company Number: CA-SAMSUNG BIOEPIS-SB-2021-20759

PATIENT
  Age: 42 Year
  Sex: Male

DRUGS (1)
  1. RENFLEXIS [Suspect]
     Active Substance: INFLIXIMAB-ABDA
     Indication: CROHN^S DISEASE
     Dosage: BATCH F2002003 X 3, VIAL
     Route: 042
     Dates: start: 20210520

REACTIONS (2)
  - Fistula discharge [Not Recovered/Not Resolved]
  - Therapeutic response shortened [Not Recovered/Not Resolved]
